FAERS Safety Report 6615559-3 (Version None)
Quarter: 2010Q1

REPORT INFORMATION
  Report Type: 
  Country: None (occurrence: None)
  Receive Date: 20100305
  Receipt Date: 20100225
  Transmission Date: 20100710
  Serious: No
  Sender: FDA-Public Use
  Company Number: US-ROCHE-681510

PATIENT
  Age: 4 Year
  Sex: Male
  Weight: 12.2 kg

DRUGS (5)
  1. TAMIFLU [Suspect]
     Indication: INFLUENZA
     Dosage: OVERDOSE
     Route: 048
  2. TAMIFLU [Suspect]
     Route: 048
  3. ROCEPHIN [Concomitant]
  4. SINGULAIR [Concomitant]
  5. MOTRIN [Concomitant]

REACTIONS (2)
  - NO ADVERSE EVENT [None]
  - OVERDOSE [None]
